FAERS Safety Report 24255221 (Version 1)
Quarter: 2024Q3

REPORT INFORMATION
  Report Type: Spontaneous
  Country: US (occurrence: None)
  Receive Date: 20240826
  Receipt Date: 20240826
  Transmission Date: 20241017
  Serious: No
  Sender: Public
  Company Number: None

PATIENT
  Age: 55 Year
  Sex: Female
  Weight: 98.88 kg

DRUGS (6)
  1. DIETARY SUPPLEMENT [Suspect]
     Active Substance: DIETARY SUPPLEMENT
     Indication: Arthralgia
     Dosage: 1 PILL/ DAILY MOUTH
     Route: 048
     Dates: start: 202403, end: 20240608
  2. MELOXICAM [Concomitant]
     Active Substance: MELOXICAM
  3. FLUOXETINE [Concomitant]
     Active Substance: FLUOXETINE HYDROCHLORIDE
  4. FISH OIL [Concomitant]
     Active Substance: FISH OIL
  5. VITAMIN D [Concomitant]
     Active Substance: VITAMIN D NOS
  6. OMEPRAZOLE [Concomitant]
     Active Substance: OMEPRAZOLE

REACTIONS (9)
  - Dyspepsia [None]
  - Decreased appetite [None]
  - Blood pressure increased [None]
  - Abdominal pain upper [None]
  - Middle insomnia [None]
  - Insomnia [None]
  - Personality change [None]
  - Recalled product administered [None]
  - Product formulation issue [None]

NARRATIVE: CASE EVENT DATE: 20240601
